FAERS Safety Report 7728280-5 (Version None)
Quarter: 2011Q3

REPORT INFORMATION
  Report Type: 
  Country: None (occurrence: None)
  Receive Date: 20110905
  Receipt Date: 20110829
  Transmission Date: 20111222
  Serious: Yes (Other)
  Sender: FDA-Public Use
  Company Number: PHEH2009US07511

PATIENT
  Sex: Female
  Weight: 63.6 kg

DRUGS (16)
  1. WELLBUTRIN [Concomitant]
  2. XANAX [Concomitant]
  3. SYNTHROID [Concomitant]
  4. AREDIA [Suspect]
  5. COUMADIN [Concomitant]
  6. LEXAPRO [Concomitant]
  7. FLEXERIL [Concomitant]
  8. LYRICA [Concomitant]
  9. PREVACID [Concomitant]
  10. ZOMETA [Suspect]
     Dosage: 4 MG, QMO
     Route: 042
  11. TRAZODONE HCL [Concomitant]
  12. FENTANYL-100 [Concomitant]
  13. PROPOFOL [Concomitant]
  14. METHADONE HCL [Concomitant]
     Dosage: 10 MG, TID
     Route: 048
  15. CYMBALTA [Concomitant]
     Dosage: 60 MG, QD
     Route: 048
  16. LIDOCAINE [Concomitant]

REACTIONS (31)
  - PAIN [None]
  - BRONCHITIS [None]
  - LUMBAR SPINAL STENOSIS [None]
  - OSTEOARTHRITIS [None]
  - NEOPLASM PROGRESSION [None]
  - WEIGHT INCREASED [None]
  - OSTEONECROSIS OF JAW [None]
  - METASTASES TO LIVER [None]
  - HYPERTENSION [None]
  - PULMONARY EMBOLISM [None]
  - EPISTAXIS [None]
  - BREAST CANCER METASTATIC [None]
  - METASTASES TO BONE [None]
  - GENERAL PHYSICAL HEALTH DETERIORATION [None]
  - NEOPLASM MALIGNANT [None]
  - DYSPHONIA [None]
  - DYSPNOEA EXERTIONAL [None]
  - MENTAL STATUS CHANGES [None]
  - ANHEDONIA [None]
  - ANXIETY [None]
  - COUGH [None]
  - DIARRHOEA [None]
  - HAEMOPTYSIS [None]
  - CONFUSIONAL STATE [None]
  - NIGHT SWEATS [None]
  - NEUROPATHY PERIPHERAL [None]
  - HALLUCINATION [None]
  - GASTROOESOPHAGEAL REFLUX DISEASE [None]
  - WEIGHT DECREASED [None]
  - PULMONARY HILUM MASS [None]
  - STOMATITIS [None]
